FAERS Safety Report 22262218 (Version 2)
Quarter: 2023Q2

REPORT INFORMATION
  Report Type: Report from Study
  Country: US (occurrence: US)
  Receive Date: 20230428
  Receipt Date: 20230508
  Transmission Date: 20230722
  Serious: Yes (Hospitalization)
  Sender: FDA-Public Use
  Company Number: US-GBT-021955

PATIENT
  Age: 32 Year
  Sex: Male

DRUGS (1)
  1. OXBRYTA [Suspect]
     Active Substance: VOXELOTOR
     Indication: Sickle cell disease
     Dates: start: 20210401

REACTIONS (3)
  - Hypersplenism [Recovered/Resolved]
  - Hyperkalaemia [Recovered/Resolved]
  - Sickle cell anaemia [Recovered/Resolved]

NARRATIVE: CASE EVENT DATE: 20220828
